FAERS Safety Report 19073310 (Version 1)
Quarter: 2021Q1

REPORT INFORMATION
  Report Type: Spontaneous
  Country: US (occurrence: US)
  Receive Date: 20210330
  Receipt Date: 20210330
  Transmission Date: 20210420
  Serious: No
  Sender: FDA-Public Use
  Company Number: US-EMD SERONO-7071120

PATIENT
  Age: 47 Year
  Sex: Female

DRUGS (3)
  1. REBIF [Suspect]
     Active Substance: INTERFERON BETA-1A
     Indication: MULTIPLE SCLEROSIS
     Route: 058
     Dates: start: 20051024
  2. REBIF [Suspect]
     Active Substance: INTERFERON BETA-1A
     Route: 058
  3. REBIF [Suspect]
     Active Substance: INTERFERON BETA-1A
     Route: 058

REACTIONS (10)
  - Ligament sprain [Recovering/Resolving]
  - Pain in extremity [Not Recovered/Not Resolved]
  - Oedema peripheral [Unknown]
  - Meniscus injury [Recovering/Resolving]
  - Weight increased [Unknown]
  - Influenza like illness [Recovered/Resolved]
  - Fall [Unknown]
  - Ligament rupture [Recovering/Resolving]
  - Spinal stenosis [Unknown]
  - Ligament disorder [Recovering/Resolving]

NARRATIVE: CASE EVENT DATE: 2020
